FAERS Safety Report 13418511 (Version 1)
Quarter: 2017Q2

REPORT INFORMATION
  Report Type: Spontaneous
  Country: US (occurrence: US)
  Receive Date: 20170408
  Receipt Date: 20170408
  Transmission Date: 20170830
  Serious: Yes (Death)
  Sender: FDA-Public Use
  Company Number: US-ROCHE-1917974

PATIENT
  Age: 89 Year
  Sex: Female

DRUGS (1)
  1. ESBRIET [Suspect]
     Active Substance: PIRFENIDONE
     Indication: IDIOPATHIC PULMONARY FIBROSIS
     Dosage: 2 CAPS, 267 MG TID
     Route: 048
     Dates: start: 20151112, end: 20161206

REACTIONS (1)
  - Death [Fatal]

NARRATIVE: CASE EVENT DATE: 20170207
